FAERS Safety Report 4911664-8 (Version None)
Quarter: 2006Q1

REPORT INFORMATION
  Report Type: 
  Country: None (occurrence: None)
  Receive Date: 20060213
  Receipt Date: 20060130
  Transmission Date: 20060701
  Serious: Yes (Other)
  Sender: FDA-Public Use
  Company Number: 2006015085

PATIENT
  Age: 80 Year
  Sex: Male
  Weight: 124.7392 kg

DRUGS (7)
  1. LYRICA [Suspect]
     Indication: NEURALGIA
     Dosage: 150 MG (50 MG, 3 IN 1 D)
     Dates: start: 20060125, end: 20060126
  2. FUROSEMIDE [Concomitant]
  3. ASPIRIN [Concomitant]
  4. LISINOPRIL [Concomitant]
  5. VITAMIN D [Concomitant]
  6. CARDIZEM [Concomitant]
  7. MICRONASE [Concomitant]

REACTIONS (3)
  - BACK INJURY [None]
  - FALL [None]
  - TREMOR [None]
